FAERS Safety Report 25777028 (Version 1)
Quarter: 2025Q3

REPORT INFORMATION
  Report Type: Spontaneous
  Country: US (occurrence: US)
  Receive Date: 20250909
  Receipt Date: 20250909
  Transmission Date: 20251020
  Serious: No
  Sender: DOMPE FARMACEUTICI
  Company Number: US-FARMAPROD-202409-3388

PATIENT
  Age: 61 Year
  Sex: Female

DRUGS (5)
  1. OXERVATE [Suspect]
     Active Substance: CENEGERMIN-BKBJ
     Indication: Neurotrophic keratopathy
     Route: 047
     Dates: start: 20240904
  2. OXERVATE [Suspect]
     Active Substance: CENEGERMIN-BKBJ
  3. BACITRACIN ZINC [Concomitant]
  4. ERYTHROMYCIN [Concomitant]
     Active Substance: ERYTHROMYCIN
  5. SODIUM CHLORIDE [Concomitant]
     Active Substance: SODIUM CHLORIDE

REACTIONS (4)
  - Eye swelling [Unknown]
  - Eye inflammation [Unknown]
  - Oropharyngeal pain [Unknown]
  - Eye pain [Unknown]

NARRATIVE: CASE EVENT DATE: 20241018
